FAERS Safety Report 7741327-5 (Version None)
Quarter: 2011Q3

REPORT INFORMATION
  Report Type: 
  Country: None (occurrence: None)
  Receive Date: 20110909
  Receipt Date: 20110829
  Transmission Date: 20111222
  Serious: Yes (Hospitalization)
  Sender: FDA-Public Use
  Company Number: US-BAYER-201041730NA

PATIENT
  Age: 28 Year
  Sex: Female
  Weight: 157.37 kg

DRUGS (3)
  1. YASMIN [Suspect]
     Indication: ORAL CONTRACEPTION
     Dosage: UNK
     Dates: start: 20080130, end: 20081026
  2. NAPROSYN [Concomitant]
  3. LISINOPRIL AND HYDROCHLOROTHIAZIDE [Concomitant]
     Dosage: UNK UNK, QD
     Route: 048

REACTIONS (5)
  - CHEST PAIN [None]
  - PNEUMONIA [None]
  - DYSPNOEA [None]
  - PULMONARY INFARCTION [None]
  - PULMONARY EMBOLISM [None]
